FAERS Safety Report 4852511-2 (Version None)
Quarter: 2005Q4

REPORT INFORMATION
  Report Type: 
  Country: None (occurrence: None)
  Receive Date: 20051213
  Receipt Date: 20051208
  Transmission Date: 20060501
  Serious: Yes (Hospitalization)
  Sender: FDA-Public Use
  Company Number: PHNU2005DE04053

PATIENT
  Age: 48 Year
  Sex: Female

DRUGS (2)
  1. SANDIMMUNE [Suspect]
     Indication: RENAL TRANSPLANT
     Dosage: 170 MG, QD
     Route: 048
     Dates: start: 20000801
  2. STEROIDS NOS [Concomitant]
     Indication: RENAL TRANSPLANT
     Dosage: 8 MG, QD
     Dates: start: 20000801

REACTIONS (1)
  - TENDON RUPTURE [None]
